FAERS Safety Report 15886167 (Version 1)
Quarter: 2019Q1

REPORT INFORMATION
  Report Type: Spontaneous
  Country: RO (occurrence: RO)
  Receive Date: 20190129
  Receipt Date: 20190129
  Transmission Date: 20190417
  Serious: Yes (Death)
  Sender: FDA-Public Use
  Company Number: RO-PFIZER INC-2019038094

PATIENT
  Age: 68 Year
  Sex: Male
  Weight: 77 kg

DRUGS (4)
  1. DHC CONTINUS [Concomitant]
     Active Substance: DIHYDROCODEINE BITARTRATE
     Dosage: 90 MG, 2X/DAY, MORNING AND EVENING
  2. SUTENT [Suspect]
     Active Substance: SUNITINIB MALATE
     Indication: RENAL NEOPLASM
     Dosage: 50 MG, CYCLIC, 28 DAYS ON TREATMENT WITH 14 DAYS PAUSE
     Dates: start: 201604, end: 20190117
  3. VIMOVO [Concomitant]
     Active Substance: ESOMEPRAZOLE MAGNESIUM\NAPROXEN
     Dosage: 500/20 MG, 2X/DAY MORNING AND EVENING
  4. ALGIFEN [FENPIVERINIUM BROMIDE;METAMIZOLE SODIUM MONOHYDRATE;PITOFENON [Concomitant]
     Dosage: UNK UNK, 3X/DAY, MORNING NOON AND EVENING

REACTIONS (1)
  - Death [Fatal]

NARRATIVE: CASE EVENT DATE: 20190117
